APPROVED DRUG PRODUCT: MPI INDIUM DTPA IN 111
Active Ingredient: INDIUM IN-111 PENTETATE DISODIUM
Strength: 1mCi/ML
Dosage Form/Route: INJECTABLE;INTRATHECAL
Application: N017707 | Product #001
Applicant: GE HEALTHCARE
Approved: Feb 18, 1982 | RLD: Yes | RS: Yes | Type: RX